FAERS Safety Report 4340087-8 (Version None)
Quarter: 2004Q2

REPORT INFORMATION
  Report Type: 
  Country: None (occurrence: None)
  Receive Date: 20040415
  Receipt Date: 20040415
  Transmission Date: 20050107
  Serious: No
  Sender: FDA-Public Use
  Company Number: None

PATIENT
  Sex: Female
  Weight: 66.6788 kg

DRUGS (2)
  1. VENLAFAXINE HCL [Suspect]
     Indication: AFFECTIVE DISORDER
     Dosage: 75 MG TID ORAL
     Route: 048
     Dates: start: 20010401, end: 20040411
  2. VENLAFAXINE HCL [Suspect]
     Indication: ANXIETY
     Dosage: 75 MG TID ORAL
     Route: 048
     Dates: start: 20010401, end: 20040411

REACTIONS (9)
  - DRUG WITHDRAWAL SYNDROME [None]
  - DYSPHONIA [None]
  - FEELING ABNORMAL [None]
  - HALLUCINATION, AUDITORY [None]
  - NERVOUS SYSTEM DISORDER [None]
  - PARAESTHESIA [None]
  - RESPIRATORY DISORDER [None]
  - TINNITUS [None]
  - TREMOR [None]
